FAERS Safety Report 8812198 (Version 1)
Quarter: 2012Q4

REPORT INFORMATION
  Report Type: 
  Country: US (occurrence: US)
  Receive Date: 20120927
  Receipt Date: 20120927
  Transmission Date: 20130627
  Serious: Yes (Other)
  Sender: FDA-Public Use
  Company Number: US-ROCHE-1126796

PATIENT
  Sex: Male

DRUGS (4)
  1. AVASTIN [Suspect]
     Indication: LUNG NEOPLASM MALIGNANT
     Route: 065
     Dates: start: 200808
  2. TAXOL [Suspect]
     Indication: LUNG NEOPLASM MALIGNANT
     Route: 065
     Dates: start: 200808
  3. GEMZAR [Concomitant]
  4. CARBOPLATIN [Concomitant]

REACTIONS (4)
  - Bone marrow failure [Unknown]
  - Arthralgia [Unknown]
  - Neuropathy peripheral [Unknown]
  - Myalgia [Unknown]
